FAERS Safety Report 20689919 (Version 1)
Quarter: 2022Q2

REPORT INFORMATION
  Report Type: Spontaneous
  Country: None (occurrence: US)
  Receive Date: 20220408
  Receipt Date: 20220408
  Transmission Date: 20220721
  Serious: Yes (Hospitalization, Other)
  Sender: FDA-Public Use
  Company Number: US-Canton Laboratories, LLC-2127515

PATIENT
  Age: 40 Year
  Sex: Female

DRUGS (1)
  1. NAPROSYN [Suspect]
     Active Substance: NAPROXEN
     Indication: Prophylaxis
     Route: 048

REACTIONS (1)
  - Anaphylactic reaction [Recovered/Resolved]
